FAERS Safety Report 5757144-1 (Version None)
Quarter: 2008Q2

REPORT INFORMATION
  Report Type: 
  Country: None (occurrence: None)
  Receive Date: 20080529
  Receipt Date: 20080521
  Transmission Date: 20081010
  Serious: Yes (Other)
  Sender: FDA-Public Use
  Company Number: 2008SP008269

PATIENT
  Age: 56 Year
  Sex: Female
  Weight: 83.9154 kg

DRUGS (7)
  1. CLARITIN [Suspect]
     Indication: ALLERGY TO PLANTS
     Dosage: 10 MG; QD; PO
     Route: 048
     Dates: start: 20080201, end: 20080415
  2. CLARITIN [Suspect]
     Indication: EFFUSION
     Dosage: 10 MG; QD; PO
     Route: 048
     Dates: start: 20080201, end: 20080415
  3. ZOCOR [Concomitant]
  4. BENICAR HCT [Concomitant]
  5. TOPROL-XL [Concomitant]
  6. PREVACID [Concomitant]
  7. METFORMIN HCL [Concomitant]

REACTIONS (1)
  - HALLUCINATION [None]
